FAERS Safety Report 19584547 (Version 4)
Quarter: 2021Q3

REPORT INFORMATION
  Report Type: Spontaneous
  Country: JP (occurrence: JP)
  Receive Date: 20210720
  Receipt Date: 20210920
  Transmission Date: 20211014
  Serious: Yes (Death, Hospitalization, Other)
  Sender: FDA-Public Use
  Company Number: JP-009507513-2107JPN001167J

PATIENT
  Age: 46 Year
  Sex: Male

DRUGS (1)
  1. KEYTRUDA [Suspect]
     Active Substance: PEMBROLIZUMAB
     Indication: NON-SMALL CELL LUNG CANCER
     Dosage: 200 MILLIGRAM, Q3W
     Route: 041
     Dates: end: 202105

REACTIONS (3)
  - Immune-mediated enterocolitis [Recovered/Resolved]
  - Malignant neoplasm progression [Fatal]
  - Hypoproteinaemia [Unknown]

NARRATIVE: CASE EVENT DATE: 202105
